FAERS Safety Report 4451361-9 (Version None)
Quarter: 2004Q3

REPORT INFORMATION
  Report Type: 
  Country: None (occurrence: None)
  Receive Date: 20040916
  Receipt Date: 20040729
  Transmission Date: 20050211
  Serious: Yes (Other)
  Sender: FDA-Public Use
  Company Number: JP-MERCK-0408USA00162

PATIENT
  Age: 74 Year
  Sex: Female

DRUGS (4)
  1. NORVASC [Concomitant]
     Route: 048
     Dates: start: 20010207
  2. LIPITOR [Concomitant]
     Route: 048
     Dates: start: 20010207
  3. PEPCID RPD [Suspect]
     Indication: GASTRITIS
     Route: 048
     Dates: start: 20021028, end: 20030316
  4. PEPCID RPD [Suspect]
     Route: 048
     Dates: start: 20030317, end: 20040425

REACTIONS (5)
  - ARRHYTHMIA [None]
  - ATRIAL FIBRILLATION [None]
  - ELECTROCARDIOGRAM ABNORMAL [None]
  - EXTRASYSTOLES [None]
  - SINUS ARRHYTHMIA [None]
